FAERS Safety Report 6617505-5 (Version None)
Quarter: 2010Q1

REPORT INFORMATION
  Report Type: 
  Country: None (occurrence: None)
  Receive Date: 20100302
  Receipt Date: 20100216
  Transmission Date: 20100710
  Serious: Yes (Other)
  Sender: FDA-Public Use
  Company Number: 20100064

PATIENT
  Age: 55 Year
  Sex: Female

DRUGS (2)
  1. EPINEPHRINE [Suspect]
     Indication: HAEMODYNAMIC INSTABILITY
     Dosage: 0.9 UG/KG/MIN INTRAVENOUS
     Route: 042
  2. VASOPRESSIN [Concomitant]

REACTIONS (5)
  - BLOOD GLUCOSE INCREASED [None]
  - BRAIN DEATH [None]
  - CARDIO-RESPIRATORY ARREST [None]
  - INCREASED INSULIN REQUIREMENT [None]
  - METABOLIC ACIDOSIS [None]
